FAERS Safety Report 7903859-6 (Version None)
Quarter: 2011Q4

REPORT INFORMATION
  Report Type: 
  Country: None (occurrence: None)
  Receive Date: 20111109
  Receipt Date: 20110721
  Transmission Date: 20120403
  Serious: No
  Sender: FDA-Public Use
  Company Number: US-BAYER-2011-078086

PATIENT
  Age: 92 Year
  Sex: Female
  Weight: 63 kg

DRUGS (3)
  1. PEPCID [Concomitant]
  2. ALEVE (CAPLET) [Suspect]
     Indication: PAIN
     Dosage: 1 DF, BID
     Route: 048
     Dates: start: 20110719
  3. SYNTHROID [Concomitant]

REACTIONS (1)
  - PAIN [None]
